FAERS Safety Report 5986913-8 (Version None)
Quarter: 2008Q4

REPORT INFORMATION
  Report Type: 
  Country: None (occurrence: None)
  Receive Date: 20081209
  Receipt Date: 20081201
  Transmission Date: 20090506
  Serious: Yes (Other)
  Sender: FDA-Public Use
  Company Number: JP-GENENTECH-263751

PATIENT
  Age: 23 Week
  Sex: Female
  Weight: 0.598 kg

DRUGS (1)
  1. AVASTIN [Suspect]
     Indication: RETINOPATHY OF PREMATURITY
     Dosage: 0.4 MG, UNK
     Route: 031

REACTIONS (1)
  - RETINAL DETACHMENT [None]
